FAERS Safety Report 8101477-0 (Version None)
Quarter: 2012Q1

REPORT INFORMATION
  Report Type: 
  Country: None (occurrence: None)
  Receive Date: 20120129
  Receipt Date: 20111030
  Transmission Date: 20120608
  Serious: No
  Sender: FDA-Public Use
  Company Number: US-ABBOTT-11P-163-0863165-00

PATIENT
  Age: 39 Year
  Sex: Female

DRUGS (6)
  1. HUMIRA [Suspect]
     Dosage: LOADING DOSE #2 - 80 MG
     Dates: start: 20110930
  2. AZATHIOPRINE [Concomitant]
     Indication: CROHN'S DISEASE
     Dosage: 1 PILL = 50 MG; 2.5 PILLS = 125 MG
  3. HUMIRA [Suspect]
     Indication: CROHN'S DISEASE
     Dosage: INITIAL LOADING DOSE #1 - 160 MG
     Dates: start: 20110915, end: 20110915
  4. FLONASE [Concomitant]
     Indication: PRODUCT USED FOR UNKNOWN INDICATION
  5. NORGESTIMATE AND ETHINYL ESTRADIOL [Concomitant]
     Indication: CONTRACEPTION
  6. ALLEGRA [Concomitant]
     Indication: PRODUCT USED FOR UNKNOWN INDICATION

REACTIONS (3)
  - INJECTION SITE PRURITUS [None]
  - INJECTION SITE ERYTHEMA [None]
  - INJECTION SITE INFLAMMATION [None]
